FAERS Safety Report 12589452 (Version 1)
Quarter: 2016Q3

REPORT INFORMATION
  Report Type: Spontaneous
  Country: CA (occurrence: CA)
  Receive Date: 20160725
  Receipt Date: 20160725
  Transmission Date: 20161109
  Serious: Yes (Life-Threatening, Hospitalization, Disabling)
  Sender: FDA-Public Use
  Company Number: CA-JNJFOC-20160719188

PATIENT
  Age: 34 Year
  Sex: Female
  Weight: 95 kg

DRUGS (3)
  1. IBUPROFEN. [Concomitant]
     Active Substance: IBUPROFEN
     Route: 065
  2. ORTHO EVRA [Suspect]
     Active Substance: ETHINYL ESTRADIOL\NORELGESTROMIN
     Indication: CONTRACEPTION
     Dosage: THERAPY DURATION-3.0 YEARS
     Route: 065
  3. ESCITALOPRAM [Concomitant]
     Active Substance: ESCITALOPRAM OXALATE
     Route: 065

REACTIONS (8)
  - Cerebrovascular accident [Unknown]
  - Dysarthria [Unknown]
  - Musculoskeletal pain [Unknown]
  - Sensory loss [Unknown]
  - Vertigo [Unknown]
  - Neck pain [Unknown]
  - Vomiting [Unknown]
  - Hemiparesis [Unknown]
